FAERS Safety Report 24779311 (Version 1)
Quarter: 2024Q4

REPORT INFORMATION
  Report Type: Spontaneous
  Country: US (occurrence: US)
  Receive Date: 20241226
  Receipt Date: 20241226
  Transmission Date: 20250115
  Serious: No
  Sender: Kenvue
  Company Number: US-KENVUE-20241108344

PATIENT
  Sex: Female

DRUGS (2)
  1. MENS ROGAINE EXTRA STRENGTH [Suspect]
     Active Substance: MINOXIDIL
     Indication: Alopecia
     Dosage: 1 1/2 INCH DIAMETER, TWICE A DAY
     Route: 061
     Dates: start: 2014
  2. MENS ROGAINE EXTRA STRENGTH [Suspect]
     Active Substance: MINOXIDIL
     Indication: Accidental exposure to product

REACTIONS (6)
  - Accidental exposure to product [Unknown]
  - Pruritus [Recovering/Resolving]
  - Product physical consistency issue [Unknown]
  - Poor quality product administered [Unknown]
  - Product use issue [Unknown]
  - Intentional product misuse [Unknown]
